FAERS Safety Report 23896342 (Version 2)
Quarter: 2025Q2

REPORT INFORMATION
  Report Type: Report from Study
  Country: KR (occurrence: KR)
  Receive Date: 20240524
  Receipt Date: 20250618
  Transmission Date: 20250716
  Serious: Yes (Other)
  Sender: ASTELLAS
  Company Number: KR-ASTELLAS-2024US014635

PATIENT
  Age: 66 Year
  Sex: Female
  Weight: 52 kg

DRUGS (11)
  1. TACROLIMUS [Suspect]
     Active Substance: TACROLIMUS
     Indication: Immunosuppression
     Dosage: 1.59 MG, ONCE DAILY
     Route: 065
     Dates: start: 20230820, end: 20230912
  2. TACROLIMUS [Suspect]
     Active Substance: TACROLIMUS
     Dosage: 3.5 MG, ONCE DAILY
     Route: 065
     Dates: start: 20230913, end: 20230916
  3. CYCLOSPORINE [Suspect]
     Active Substance: CYCLOSPORINE
     Indication: Product used for unknown indication
     Route: 065
  4. GLICLAZIDE [Concomitant]
     Active Substance: GLICLAZIDE
     Indication: Diabetes mellitus
     Dosage: 30 MG, ONCE DAILY
     Route: 065
     Dates: start: 20200819, end: 20230916
  5. LETROZOLE [Concomitant]
     Active Substance: LETROZOLE
     Indication: Breast cancer
     Dosage: 2.5 MG, ONCE DAILY
     Route: 065
     Dates: start: 20230705, end: 20230915
  6. CLONAZEPAM [Concomitant]
     Active Substance: CLONAZEPAM
     Indication: Nausea
     Dosage: 0.5 MG, ONCE DAILY
     Route: 065
     Dates: start: 20230818, end: 20230908
  7. LINAGLIPTIN [Concomitant]
     Active Substance: LINAGLIPTIN
     Indication: Diabetes mellitus
     Dosage: 2 DF, ONCE DAILY
     Route: 065
     Dates: start: 20200819, end: 20230916
  8. OLANZAPINE [Concomitant]
     Active Substance: OLANZAPINE
     Indication: Nausea
     Dosage: 10 MG, ONCE DAILY
     Route: 065
     Dates: start: 20230818, end: 20230819
  9. METOCLOPRAMIDE HYDROCHLORIDE [Concomitant]
     Active Substance: METOCLOPRAMIDE HYDROCHLORIDE
     Indication: Nausea
     Dosage: 10 MG, ONCE DAILY
     Route: 065
     Dates: start: 20230816, end: 20230819
  10. CEFEPIME HYDROCHLORIDE [Concomitant]
     Active Substance: CEFEPIME HYDROCHLORIDE
     Indication: Pyrexia
     Dosage: 4 G, ONCE DAILY
     Route: 065
     Dates: start: 20230820, end: 20230904
  11. ACETAMINOPHEN [Concomitant]
     Active Substance: ACETAMINOPHEN
     Indication: Pyrexia
     Dosage: 1 G, ONCE DAILY
     Route: 065
     Dates: start: 20230820, end: 20230821

REACTIONS (11)
  - Leukoencephalopathy [Not Recovered/Not Resolved]
  - Brain injury [Not Recovered/Not Resolved]
  - Toxic encephalopathy [Not Recovered/Not Resolved]
  - Diarrhoea [Recovered/Resolved]
  - Headache [Recovered/Resolved]
  - Nausea [Recovered/Resolved]
  - Pyrexia [Recovered/Resolved]
  - Decreased appetite [Recovered/Resolved]
  - Rash [Recovered/Resolved]
  - Blood creatinine increased [Recovered/Resolved]
  - Liver function test increased [Recovered/Resolved]

NARRATIVE: CASE EVENT DATE: 20230823
